FAERS Safety Report 19924369 (Version 1)
Quarter: 2021Q4

REPORT INFORMATION
  Report Type: Report from Study
  Country: DE (occurrence: DE)
  Receive Date: 20211006
  Receipt Date: 20211006
  Transmission Date: 20220303
  Serious: Yes (Hospitalization)
  Sender: FDA-Public Use
  Company Number: DE-AMGEN-DEUNI2018084906

PATIENT
  Age: 80 Year
  Sex: Male
  Weight: 73 kg

DRUGS (34)
  1. FLUOROURACIL [Suspect]
     Active Substance: FLUOROURACIL
     Indication: Colorectal cancer metastatic
     Dosage: 4500 MILLIGRAM
     Route: 042
     Dates: start: 20181211
  2. FLUOROURACIL [Suspect]
     Active Substance: FLUOROURACIL
     Dosage: 4490 MILLIGRAM
     Route: 042
     Dates: start: 20181127
  3. FLUOROURACIL [Suspect]
     Active Substance: FLUOROURACIL
     Dosage: 4600 MILLIGRAM
     Route: 042
     Dates: start: 20190122
  4. FLUOROURACIL [Suspect]
     Active Substance: FLUOROURACIL
     Dosage: 748 MILLIGRAM
     Route: 042
     Dates: start: 20180517
  5. FLUOROURACIL [Suspect]
     Active Substance: FLUOROURACIL
     Dosage: 4500 MILLIGRAM
     Route: 042
     Dates: start: 20180614
  6. FLUOROURACIL [Suspect]
     Active Substance: FLUOROURACIL
     Dosage: 4488 MILLIGRAM
     Route: 042
     Dates: start: 20180517
  7. FLUOROURACIL [Suspect]
     Active Substance: FLUOROURACIL
     Dosage: 4490 MILLIGRAM
     Route: 042
     Dates: start: 20180614
  8. FLUOROURACIL [Suspect]
     Active Substance: FLUOROURACIL
     Dosage: 750 MILLIGRAM
     Route: 042
     Dates: start: 20180614
  9. FLUOROURACIL [Suspect]
     Active Substance: FLUOROURACIL
     Dosage: 4584 MILLIGRAM
     Route: 042
     Dates: start: 20180806
  10. LEUCOVORIN [Suspect]
     Active Substance: LEUCOVORIN
     Indication: Product used for unknown indication
     Dosage: 750 MILLIGRAM
     Route: 065
     Dates: start: 20180614
  11. LEUCOVORIN [Suspect]
     Active Substance: LEUCOVORIN
     Dosage: 764 MILLIGRAM
     Route: 065
     Dates: start: 20190723
  12. LEUCOVORIN [Suspect]
     Active Substance: LEUCOVORIN
     Dosage: 748 MILLIGRAM
     Route: 065
     Dates: start: 20180517
  13. IRINOTECAN [Suspect]
     Active Substance: IRINOTECAN
     Indication: Colorectal cancer metastatic
     Dosage: 340 MILLIGRAM
     Route: 065
     Dates: start: 20180614
  14. IRINOTECAN [Suspect]
     Active Substance: IRINOTECAN
     Dosage: 343 MILLIGRAM
     Route: 065
     Dates: start: 20190806
  15. IRINOTECAN [Suspect]
     Active Substance: IRINOTECAN
     Dosage: 336 MILLIGRAM
     Route: 065
     Dates: start: 20180517
  16. VECTIBIX [Suspect]
     Active Substance: PANITUMUMAB
     Indication: Product used for unknown indication
     Dosage: 350 MILLIGRAM
     Route: 042
     Dates: start: 20181002
  17. VECTIBIX [Suspect]
     Active Substance: PANITUMUMAB
     Dosage: 370 MILLIGRAM
     Route: 042
     Dates: start: 20190122
  18. VECTIBIX [Suspect]
     Active Substance: PANITUMUMAB
     Dosage: 80 MILLIGRAM
     Route: 042
     Dates: start: 20181031
  19. VECTIBIX [Suspect]
     Active Substance: PANITUMUMAB
     Dosage: 190 MILLIGRAM
     Route: 042
     Dates: start: 20190219
  20. VECTIBIX [Suspect]
     Active Substance: PANITUMUMAB
     Dosage: 440 MILLIGRAM
     Route: 042
     Dates: start: 20180614
  21. VECTIBIX [Suspect]
     Active Substance: PANITUMUMAB
     Dosage: 180 MILLIGRAM
     Route: 042
     Dates: start: 20190319
  22. VECTIBIX [Suspect]
     Active Substance: PANITUMUMAB
     Dosage: 350 MILLIGRAM
     Route: 042
     Dates: start: 20181113
  23. VECTIBIX [Suspect]
     Active Substance: PANITUMUMAB
     Dosage: 230 MILLIGRAM
     Route: 042
     Dates: start: 20190507
  24. CANDIO HERMAL [Concomitant]
     Indication: Stomatitis
     Dosage: 8 MILLILITER, AS NECESSARY
     Route: 048
     Dates: start: 201805
  25. PANTOZOL [Concomitant]
     Active Substance: PANTOPRAZOLE SODIUM
     Indication: Prophylaxis against gastrointestinal ulcer
     Dosage: 40 MILLIGRAM, QD
     Route: 048
     Dates: start: 201805
  26. METAMIZOLE [Concomitant]
     Active Substance: METAMIZOLE
     Indication: Pain
     Dosage: 500 MILLIGRAM, AS NECESSARY
     Route: 048
     Dates: start: 201806, end: 20180711
  27. GLANDOMED [Concomitant]
     Indication: Stomatitis
     Dosage: 40 MILLILITER, AS NECESSARY
     Route: 048
     Dates: start: 201805
  28. ZOPICLONE RATIOPHARM [Concomitant]
     Indication: Sleep disorder
     Dosage: 7.5 MILLIGRAM, AS NECESSARY
     Route: 048
     Dates: start: 201806, end: 20180711
  29. MOVICOL [Concomitant]
     Active Substance: POLYETHYLENE GLYCOL 3350\POTASSIUM CHLORIDE\SODIUM BICARBONATE\SODIUM CHLORIDE
     Indication: Constipation prophylaxis
     Dosage: 13.81 GRAM, AS NECESSARY
     Route: 048
     Dates: start: 201806, end: 20180711
  30. DUTASTERIDE\TAMSULOSIN [Concomitant]
     Active Substance: DUTASTERIDE\TAMSULOSIN
     Indication: Benign prostatic hyperplasia
     Dosage: 1, UNK,QD
     Route: 048
     Dates: start: 2013
  31. SULFAMETHOXAZOLE\TRIMETHOPRIM [Concomitant]
     Active Substance: SULFAMETHOXAZOLE\TRIMETHOPRIM
     Indication: Urinary tract infection
     Dosage: 1920 MILLIGRAM, QD (960 MG, UNK)
     Route: 048
     Dates: start: 20180614, end: 20180620
  32. RAMIPRIL [Concomitant]
     Active Substance: RAMIPRIL
     Indication: Hypertension
     Dosage: 5 MILLIGRAM, QD
     Route: 048
     Dates: start: 20171119, end: 20190521
  33. EDOXABAN TOSYLATE [Concomitant]
     Active Substance: EDOXABAN TOSYLATE
     Indication: Atrial flutter
     Dosage: 60 MILLIGRAM, QD
     Route: 048
     Dates: start: 201708
  34. MCP-RATIOPHARM [Concomitant]
     Active Substance: METOCLOPRAMIDE HYDROCHLORIDE
     Indication: Nausea
     Dosage: 30 MILLIGRAM, AS NECESSARY
     Route: 048
     Dates: start: 201806, end: 20180711

REACTIONS (1)
  - General physical health deterioration [Recovered/Resolved]

NARRATIVE: CASE EVENT DATE: 20180620
